FAERS Safety Report 18001047 (Version 1)
Quarter: 2020Q3

REPORT INFORMATION
  Report Type: Report from Study
  Country: DE (occurrence: DE)
  Receive Date: 20200709
  Receipt Date: 20200709
  Transmission Date: 20201103
  Serious: Yes (Other)
  Sender: FDA-Public Use
  Company Number: DE-ROCHE-2633518

PATIENT

DRUGS (1)
  1. OCRELIZUMAB. [Suspect]
     Active Substance: OCRELIZUMAB
     Indication: MULTIPLE SCLEROSIS
     Route: 042

REACTIONS (29)
  - Fatigue [Unknown]
  - Oropharyngeal pain [Unknown]
  - Pruritus [Unknown]
  - Asthenia [Unknown]
  - Headache [Unknown]
  - Chills [Unknown]
  - Sinusitis [Unknown]
  - Ear infection [Unknown]
  - Dry mouth [Unknown]
  - Dyspepsia [Unknown]
  - Upper respiratory tract infection [Unknown]
  - Myalgia [Unknown]
  - Tachycardia [Unknown]
  - Diarrhoea [Unknown]
  - Urinary tract infection [Unknown]
  - Influenza like illness [Unknown]
  - Dizziness [Unknown]
  - Pyrexia [Unknown]
  - Rash [Recovered/Resolved]
  - Alopecia [Unknown]
  - Oral herpes [Unknown]
  - Arthralgia [Unknown]
  - Insomnia [Unknown]
  - Dyspnoea [Unknown]
  - Conjunctivitis [Unknown]
  - Bradycardia [Unknown]
  - Paraesthesia [Unknown]
  - Nausea [Unknown]
  - Flushing [Unknown]
